FAERS Safety Report 9134936 (Version 3)
Quarter: 2013Q2

REPORT INFORMATION
  Report Type: Report from Study
  Country: JP (occurrence: JP)
  Receive Date: 20130304
  Receipt Date: 20130520
  Transmission Date: 20140414
  Serious: Yes (Other)
  Sender: FDA-Public Use
  Company Number: JP-PFIZER INC-2013073403

PATIENT
  Age: 26 Year
  Sex: Male
  Weight: 50 kg

DRUGS (4)
  1. FOSPHENYTOIN SODIUM [Suspect]
     Indication: STATUS EPILEPTICUS
     Dosage: 22.5 MG/KG AT 150 MG/MIN IN 0.9% PHYSIOLOGICAL SALINE (DILUTION RATIO: 1:5)
     Dates: start: 20120731
  2. DIPRIVAN [Concomitant]
     Indication: SEDATION
     Dosage: UNK
     Route: 042
  3. VEEN-F [Concomitant]
     Dosage: 2400ML, UNK
     Route: 042
  4. TEGRETOL [Concomitant]
     Indication: EPILEPSY
     Dosage: 400 MG, UNK
     Route: 048
     Dates: start: 20120604

REACTIONS (1)
  - Blood creatine phosphokinase increased [Recovered/Resolved]
